FAERS Safety Report 25120564 (Version 1)
Quarter: 2025Q1

REPORT INFORMATION
  Report Type: Report from Study
  Country: US (occurrence: US)
  Receive Date: 20250325
  Receipt Date: 20250325
  Transmission Date: 20250408
  Serious: Yes (Other)
  Sender: GILEAD
  Company Number: US-GILEAD-2025-0708360

PATIENT

DRUGS (2)
  1. AXICABTAGENE CILOLEUCEL [Suspect]
     Active Substance: AXICABTAGENE CILOLEUCEL
     Indication: Haematological malignancy
     Route: 065
  2. ITACITINIB [Suspect]
     Active Substance: ITACITINIB
     Indication: Haematological malignancy
     Route: 065

REACTIONS (1)
  - Pneumonia necrotising [Unknown]
